FAERS Safety Report 6722982-5 (Version None)
Quarter: 2010Q2

REPORT INFORMATION
  Report Type: 
  Country: None (occurrence: None)
  Receive Date: 20100513
  Receipt Date: 20100504
  Transmission Date: 20101027
  Serious: No
  Sender: FDA-Public Use
  Company Number: US-BIOGENIDEC-2010BI014344

PATIENT
  Sex: Female

DRUGS (2)
  1. TYSABRI [Suspect]
     Indication: MULTIPLE SCLEROSIS
     Route: 042
     Dates: start: 20061221, end: 20090713
  2. TYSABRI [Suspect]
     Route: 042
     Dates: start: 20100218

REACTIONS (8)
  - BALANCE DISORDER [None]
  - BLOOD TEST ABNORMAL [None]
  - FALL [None]
  - GAIT DISTURBANCE [None]
  - MULTIPLE SCLEROSIS [None]
  - MUSCULOSKELETAL DISORDER [None]
  - STRESS [None]
  - TREMOR [None]
